FAERS Safety Report 23276517 (Version 1)
Quarter: 2023Q4

REPORT INFORMATION
  Report Type: Spontaneous
  Country: None (occurrence: US)
  Receive Date: 20231208
  Receipt Date: 20231208
  Transmission Date: 20240110
  Serious: No
  Sender: FDA-Public Use
  Company Number: US-BIOLOGICAL E. LTD-2149131

PATIENT

DRUGS (1)
  1. DAPTOMYCIN [Suspect]
     Active Substance: DAPTOMYCIN
     Indication: Product used for unknown indication
     Route: 065

REACTIONS (3)
  - Product temperature excursion issue [Unknown]
  - Product storage error [Unknown]
  - Product administration error [Unknown]
